FAERS Safety Report 5553561-3 (Version None)
Quarter: 2007Q4

REPORT INFORMATION
  Report Type: 
  Country: None (occurrence: None)
  Receive Date: 20071213
  Receipt Date: 20071206
  Transmission Date: 20080405
  Serious: Yes (Other)
  Sender: FDA-Public Use
  Company Number: DE-JNJFOC-20071201702

PATIENT
  Age: 37 Year
  Sex: Male
  Weight: 70 kg

DRUGS (1)
  1. TOPAMAX [Suspect]
     Indication: DRUG USE FOR UNKNOWN INDICATION
     Route: 048

REACTIONS (3)
  - DEPRESSION [None]
  - INTENTIONAL OVERDOSE [None]
  - SUICIDE ATTEMPT [None]
